FAERS Safety Report 5266124-4 (Version None)
Quarter: 2007Q1

REPORT INFORMATION
  Report Type: 
  Country: None (occurrence: None)
  Receive Date: 20070312
  Receipt Date: 20070301
  Transmission Date: 20070707
  Serious: Yes (Hospitalization)
  Sender: FDA-Public Use
  Company Number: VISP-GE-0703S-0092

PATIENT
  Age: 53 Year
  Sex: Male
  Weight: 79 kg

DRUGS (2)
  1. VISIPAQUE [Suspect]
     Indication: AORTIC VALVE INCOMPETENCE
     Dosage: 110 ML, SINGLE DOSE, I.A.
     Route: 013
     Dates: start: 20070223, end: 20070223
  2. VISIPAQUE [Suspect]

REACTIONS (2)
  - CHILLS [None]
  - PYREXIA [None]
